FAERS Safety Report 8226847-1 (Version None)
Quarter: 2012Q1

REPORT INFORMATION
  Report Type: 
  Country: None (occurrence: None)
  Receive Date: 20120322
  Receipt Date: 20120314
  Transmission Date: 20120608
  Serious: Yes (Hospitalization, Other)
  Sender: FDA-Public Use
  Company Number: US-BAYER-2011-049327

PATIENT
  Age: 23 Year
  Sex: Female
  Weight: 99.32 kg

DRUGS (3)
  1. DROSPIRENONE AND ETHINYL ESTRADIOL [Suspect]
     Indication: MENSTRUATION IRREGULAR
  2. DROSPIRENONE AND ETHINYL ESTRADIOL [Suspect]
     Indication: CONTRACEPTION
     Dosage: UNK
     Route: 048
     Dates: start: 20080917, end: 20090613
  3. TOBRAMYCIN [Concomitant]
     Dosage: UNK
     Dates: start: 20090301

REACTIONS (8)
  - EMOTIONAL DISTRESS [None]
  - MUSCULOSKELETAL PAIN [None]
  - PULMONARY EMBOLISM [None]
  - ANXIETY [None]
  - INJURY [None]
  - PAIN [None]
  - MUSCULOSKELETAL CHEST PAIN [None]
  - GENERAL PHYSICAL HEALTH DETERIORATION [None]
